FAERS Safety Report 18207327 (Version 1)
Quarter: 2020Q3

REPORT INFORMATION
  Report Type: Spontaneous
  Country: US (occurrence: US)
  Receive Date: 20200828
  Receipt Date: 20200828
  Transmission Date: 20201103
  Serious: No
  Sender: FDA-Public Use
  Company Number: None

PATIENT
  Age: 60 Year
  Sex: Female
  Weight: 61.7 kg

DRUGS (4)
  1. ADO?TRASTUZUMAB EMTANSINE. [Suspect]
     Active Substance: ADO-TRASTUZUMAB EMTANSINE
     Indication: BREAST CANCER
     Dosage: ?          OTHER FREQUENCY:ONE TIME INFUSION;?
     Route: 041
     Dates: start: 20200826, end: 20200826
  2. TYLENOL [Concomitant]
     Active Substance: ACETAMINOPHEN
     Dates: start: 20200826, end: 20200826
  3. SOLU?CORTEF 100 MG [Concomitant]
     Dates: start: 20200826, end: 20200826
  4. LORAZEPAM 0.5 MG [Concomitant]
     Active Substance: LORAZEPAM
     Dates: start: 20200826, end: 20200826

REACTIONS (2)
  - Dizziness [None]
  - Breast pain [None]

NARRATIVE: CASE EVENT DATE: 20200826
